FAERS Safety Report 21865517 (Version 1)
Quarter: 2023Q1

REPORT INFORMATION
  Report Type: Spontaneous
  Country: US (occurrence: US)
  Receive Date: 20230116
  Receipt Date: 20230116
  Transmission Date: 20230417
  Serious: Yes (Death, Other)
  Sender: FDA-Public Use
  Company Number: US-AMGEN-USASP2023004197

PATIENT
  Age: 54 Year
  Sex: Male

DRUGS (1)
  1. LUMAKRAS [Suspect]
     Active Substance: SOTORASIB
     Indication: Large cell lung cancer
     Dosage: UNK
     Route: 065
     Dates: start: 2022

REACTIONS (1)
  - Large cell lung cancer [Fatal]
